FAERS Safety Report 8500266-2 (Version None)
Quarter: 2012Q3

REPORT INFORMATION
  Report Type: 
  Country: None (occurrence: None)
  Receive Date: 20120710
  Receipt Date: 20120706
  Transmission Date: 20120928
  Serious: Yes (Hospitalization, Other)
  Sender: FDA-Public Use
  Company Number: US-PFIZER INC-2009178595

PATIENT
  Sex: Male
  Weight: 80.726 kg

DRUGS (10)
  1. LIPITOR [Suspect]
     Dosage: 10 MG, DAILY
     Dates: start: 19900101
  2. FISH OIL [Concomitant]
     Dosage: UNK
  3. LIPITOR [Suspect]
     Indication: BLOOD CHOLESTEROL INCREASED
     Dosage: 80 MG, 1X/DAY
  4. ZETIA [Concomitant]
     Dosage: 10 MG, UNK
  5. AMARYL [Concomitant]
     Dosage: UNK
  6. LIPITOR [Suspect]
     Dosage: 20 MG, DAILY
  7. LIPITOR [Suspect]
     Dosage: 40 MG, DAILY
  8. VASOTEC [Concomitant]
     Indication: BLOOD PRESSURE ABNORMAL
     Dosage: 2.5 MG DAILY
  9. NEXIUM [Concomitant]
     Dosage: UNK
  10. ATENOLOL [Concomitant]
     Dosage: UNK

REACTIONS (6)
  - DRUG INEFFECTIVE [None]
  - HIP ARTHROPLASTY [None]
  - HIP FRACTURE [None]
  - ARTHROPATHY [None]
  - GLUCOSE TOLERANCE IMPAIRED [None]
  - FALL [None]
